FAERS Safety Report 18042962 (Version 1)
Quarter: 2020Q3

REPORT INFORMATION
  Report Type: Other
  Country: FR (occurrence: FR)
  Receive Date: 20200720
  Receipt Date: 20200720
  Transmission Date: 20201103
  Serious: Yes (Death)
  Sender: FDA-Public Use
  Company Number: FR-CADILA HEALTHCARE LIMITED-FR-ZYDUS-049768

PATIENT

DRUGS (11)
  1. AMLODIPINE [Suspect]
     Active Substance: AMLODIPINE BESYLATE
     Indication: HYPERTENSION
     Route: 048
     Dates: end: 20200222
  2. OXYNORMORO [Suspect]
     Active Substance: OXYCODONE HYDROCHLORIDE
     Indication: PAIN
     Route: 048
     Dates: end: 20200222
  3. EUPANTOL [Suspect]
     Active Substance: PANTOPRAZOLE SODIUM
     Indication: GASTROOESOPHAGEAL REFLUX DISEASE
     Route: 048
     Dates: end: 20200222
  4. THERALENE [Suspect]
     Active Substance: TRIMEPRAZINE
     Indication: PRODUCT USED FOR UNKNOWN INDICATION
     Route: 048
     Dates: end: 20200219
  5. CLOXACILLINE [CLOXACILLIN] [Suspect]
     Active Substance: CLOXACILLIN
     Indication: BACTERAEMIA
     Route: 048
     Dates: start: 20200211, end: 20200222
  6. PARACETAMOL [Suspect]
     Active Substance: ACETAMINOPHEN
     Indication: PAIN
     Route: 048
     Dates: start: 20200208, end: 20200219
  7. SPASFON?LYOC [Suspect]
     Active Substance: PHLOROGLUCINOL
     Indication: NAUSEA
     Route: 048
     Dates: start: 20200208, end: 20200219
  8. CLAMOXYL [AMOXICILLIN] [Suspect]
     Active Substance: AMOXICILLIN
     Indication: BACTERAEMIA
     Route: 048
     Dates: start: 20200214, end: 20200219
  9. OXYCONTIN [Suspect]
     Active Substance: OXYCODONE HYDROCHLORIDE
     Indication: PAIN
     Route: 048
     Dates: end: 20200222
  10. SERESTA [Suspect]
     Active Substance: OXAZEPAM
     Indication: DEPRESSION
     Route: 048
     Dates: end: 20200222
  11. MACROGOL 4000 [Suspect]
     Active Substance: POLYETHYLENE GLYCOL 4000
     Indication: CONSTIPATION
     Route: 048
     Dates: start: 20200208, end: 20200222

REACTIONS (3)
  - Anuria [Fatal]
  - Acute kidney injury [Fatal]
  - Encephalopathy [Fatal]

NARRATIVE: CASE EVENT DATE: 20200217
